FAERS Safety Report 6217206-1 (Version None)
Quarter: 2009Q2

REPORT INFORMATION
  Report Type: 
  Country: None (occurrence: None)
  Receive Date: 20090608
  Receipt Date: 20080110
  Transmission Date: 20091009
  Serious: Yes (Other)
  Sender: FDA-Public Use
  Company Number: US-ASTRAZENECA-2007UW21531

PATIENT
  Age: 442 Month
  Sex: Female
  Weight: 128.8 kg

DRUGS (12)
  1. SEROQUEL [Suspect]
     Indication: ANXIETY
     Route: 048
     Dates: start: 20060712
  2. SEROQUEL [Suspect]
     Indication: DEPRESSION
     Route: 048
     Dates: start: 20060712
  3. SEROQUEL [Suspect]
     Route: 048
     Dates: start: 20050701, end: 20061122
  4. SEROQUEL [Suspect]
     Route: 048
     Dates: start: 20050701, end: 20061122
  5. ATENOLOL [Concomitant]
     Route: 048
  6. CLONAZEPAM [Concomitant]
     Route: 048
  7. ASPIRIN [Concomitant]
     Route: 048
  8. LIPITOR [Concomitant]
     Route: 048
  9. LISINOPRIL [Concomitant]
     Route: 048
  10. LOVASTATIN [Concomitant]
     Route: 048
  11. AMBIEN [Concomitant]
     Indication: SLEEP DISORDER
     Route: 048
  12. EFFEXOR XR [Concomitant]
     Route: 048

REACTIONS (2)
  - DIABETES MELLITUS [None]
  - DIABETIC NEUROPATHY [None]
